FAERS Safety Report 9936899 (Version 1)
Quarter: 2014Q1

REPORT INFORMATION
  Report Type: Spontaneous
  Country: US (occurrence: None)
  Receive Date: 20140115
  Receipt Date: 20140115
  Transmission Date: 20141002
  Serious: Yes (Hospitalization)
  Sender: FDA-Public Use
  Company Number: 2013US002535

PATIENT
  Age: 76 Year
  Sex: Male

DRUGS (1)
  1. ICLUSIG (PONATINIB) TABLET, 15MG [Suspect]
     Route: 048
     Dates: start: 20130219, end: 20130510

REACTIONS (4)
  - Pulmonary embolism [None]
  - Thrombosis [None]
  - Urinary tract infection [None]
  - Feeling abnormal [None]
